FAERS Safety Report 4429720-X (Version None)
Quarter: 2004Q3

REPORT INFORMATION
  Report Type: 
  Country: None (occurrence: None)
  Receive Date: 20040820
  Receipt Date: 20040811
  Transmission Date: 20050211
  Serious: Yes (Other)
  Sender: FDA-Public Use
  Company Number: SE-JNJFOC-20040803614

PATIENT
  Age: 74 Year
  Sex: Male

DRUGS (11)
  1. REMICADE [Suspect]
     Route: 042
  2. REMICADE [Suspect]
     Indication: RHEUMATOID ARTHRITIS
     Route: 042
  3. METHOTREXATE [Concomitant]
  4. PANTOLOC [Concomitant]
  5. CALCICHEW [Concomitant]
  6. BEHEPAN [Concomitant]
  7. FOLACIN [Concomitant]
  8. FOLACIN [Concomitant]
  9. VIOXX [Concomitant]
  10. ACETAMINOPHEN [Concomitant]
  11. STILNOCT [Concomitant]

REACTIONS (2)
  - PROSTATE CANCER [None]
  - URINARY TRACT INFECTION [None]
